FAERS Safety Report 14452643 (Version 1)
Quarter: 2018Q1

REPORT INFORMATION
  Report Type: Report from Study
  Country: IE (occurrence: IE)
  Receive Date: 20180129
  Receipt Date: 20180129
  Transmission Date: 20180509
  Serious: Yes (Hospitalization, Other)
  Sender: FDA-Public Use
  Company Number: IE-JNJFOC-20180123558

PATIENT
  Sex: Female

DRUGS (5)
  1. STELARA [Suspect]
     Active Substance: USTEKINUMAB
     Indication: PSORIASIS
     Route: 058
     Dates: start: 20170616
  2. COCOIS [Concomitant]
     Route: 050
  3. BETNOVATE [Concomitant]
     Active Substance: BETAMETHASONE
     Route: 050
  4. DERMOVATE [Concomitant]
     Active Substance: CLOBETASOL
     Route: 050
  5. GENTISONE [Concomitant]
     Route: 050

REACTIONS (4)
  - Procedural vomiting [Unknown]
  - Surgery [Recovering/Resolving]
  - Lupus nephritis [Recovering/Resolving]
  - Dehydration [Unknown]
